FAERS Safety Report 9806970 (Version 1)
Quarter: 2014Q1

REPORT INFORMATION
  Report Type: Spontaneous
  Country: AR (occurrence: AR)
  Receive Date: 20140109
  Receipt Date: 20140109
  Transmission Date: 20141002
  Serious: Yes (Death, Other)
  Sender: FDA-Public Use
  Company Number: AR-PFIZER INC-2014005640

PATIENT
  Age: 79 Year
  Sex: Male

DRUGS (1)
  1. RAPAMUNE [Suspect]
     Indication: RENAL TRANSPLANT
     Dosage: UNK
     Dates: start: 20130118

REACTIONS (5)
  - Cardio-respiratory arrest [Fatal]
  - Cranial nerve infection [Unknown]
  - Dementia [Unknown]
  - Pneumonia [Unknown]
  - Aortic disorder [Unknown]
